FAERS Safety Report 11931737 (Version 2)
Quarter: 2016Q2

REPORT INFORMATION
  Report Type: Spontaneous
  Country: US (occurrence: US)
  Receive Date: 20160120
  Receipt Date: 20160412
  Transmission Date: 20160815
  Serious: No
  Sender: FDA-Public Use
  Company Number: US-INCYTE CORPORATION-2015IN005585

PATIENT
  Sex: Female

DRUGS (14)
  1. CHONDROITIN [Concomitant]
     Active Substance: CHONDROITIN
  2. VITAMIN B COMPLEX [Concomitant]
     Active Substance: CYANOCOBALAMIN\DEXPANTHENOL\NIACINAMIDE\PYRIDOXINE HYDROCHLORIDE\RIBOFLAVIN 5^-PHOSPHATE SODIUM\THIAMINE HYDROCHLORIDE\VITAMIN B COMPLEX
  3. VITAMIN E                          /00110501/ [Concomitant]
     Active Substance: TOCOPHEROL
  4. VITAMIN B3 [Concomitant]
     Active Substance: NIACIN
  5. VITAMIN D                          /00107901/ [Concomitant]
     Active Substance: ERGOCALCIFEROL
  6. VITAMIN C [Concomitant]
     Active Substance: ASCORBIC ACID
  7. GLUCOSAMINE [Concomitant]
     Active Substance: GLUCOSAMINE
  8. SALMON OIL [Concomitant]
     Active Substance: FISH OIL
  9. JAKAFI [Suspect]
     Active Substance: RUXOLITINIB
     Dosage: 5 MG, BID
     Route: 048
     Dates: start: 201509
  10. ACYCLOVIR                          /00587301/ [Concomitant]
     Active Substance: ACYCLOVIR
  11. COUMADIN [Concomitant]
     Active Substance: WARFARIN SODIUM
  12. CALCIUM [Concomitant]
     Active Substance: CALCIUM
  13. JAKAFI [Suspect]
     Active Substance: RUXOLITINIB
     Indication: MYELOFIBROSIS
     Dosage: 15 MG, BID
     Route: 048
  14. VITAMIN A                          /00056001/ [Concomitant]
     Active Substance: RETINOL

REACTIONS (2)
  - Palpitations [Recovered/Resolved]
  - Heart rate irregular [Recovered/Resolved]

NARRATIVE: CASE EVENT DATE: 2015
